FAERS Safety Report 7796173-3 (Version None)
Quarter: 2011Q4

REPORT INFORMATION
  Report Type: 
  Country: None (occurrence: None)
  Receive Date: 20111004
  Receipt Date: 20110920
  Transmission Date: 20120403
  Serious: Yes (Hospitalization, Other)
  Sender: FDA-Public Use
  Company Number: US-BAYER-2011-091273

PATIENT

DRUGS (2)
  1. ALEVE (CAPLET) [Suspect]
     Dosage: 5 DF, UNK
     Route: 048
  2. MELATONIN [Suspect]
     Dosage: DOSE AS USED 60 TABLETS
     Route: 048

REACTIONS (1)
  - MEDICAL OBSERVATION [None]
